FAERS Safety Report 8941653 (Version 1)
Quarter: 2012Q4

REPORT INFORMATION
  Report Type: 
  Country: US (occurrence: US)
  Receive Date: 20121203
  Receipt Date: 20121203
  Transmission Date: 20130627
  Serious: No
  Sender: FDA-Public Use
  Company Number: US-PFIZER INC-2012299240

PATIENT
  Age: 59 Year
  Sex: Male
  Weight: 90.7 kg

DRUGS (2)
  1. ZYVOX [Suspect]
     Indication: KIDNEY INFECTION
     Dosage: 600 mg, 2x/day
     Dates: start: 20120209, end: 2012
  2. ZYVOX [Suspect]
     Dosage: 600 mg, 2x/day
     Dates: start: 2012, end: 2012

REACTIONS (1)
  - Gastric disorder [Recovered/Resolved]
